FAERS Safety Report 7846761-0 (Version None)
Quarter: 2011Q4

REPORT INFORMATION
  Report Type: 
  Country: None (occurrence: None)
  Receive Date: 20111025
  Receipt Date: 20111018
  Transmission Date: 20120403
  Serious: Yes (Hospitalization, Other)
  Sender: FDA-Public Use
  Company Number: PHEH2007US01705

PATIENT
  Sex: Male
  Weight: 76.644 kg

DRUGS (31)
  1. ZOMETA [Suspect]
     Indication: OSTEOPOROSIS
     Dosage: 4 MG, QMO
     Route: 042
     Dates: start: 20030909, end: 20060911
  2. TYLENOL W/ CODEINE [Concomitant]
  3. TEGRETOL [Concomitant]
     Route: 048
  4. FOSAMAX [Concomitant]
     Dosage: 10 MG, QD
  5. KEPPRA [Concomitant]
  6. ZOLOFT [Concomitant]
     Dosage: UNK
     Dates: start: 20060613
  7. ASPIRIN [Concomitant]
  8. PREDNISONE [Concomitant]
     Dosage: 20 MG, QOD
  9. MOTRIN [Concomitant]
  10. ASCORBIC ACID [Concomitant]
     Dosage: 500 MG, QD
  11. IBUPROFEN [Concomitant]
     Dosage: UNK MG, UNK
  12. NEURONTIN [Concomitant]
     Dosage: 600 MG, QD
  13. TRENTAL ^ALBERT-ROUSSEL^ [Concomitant]
     Dosage: 400 MG, TID
  14. PRAVACHOL [Concomitant]
  15. MEVACOR [Concomitant]
  16. ZANTAC [Concomitant]
     Dosage: 150 MG, QD
  17. IMURAN [Concomitant]
  18. FLOMAX [Concomitant]
  19. CIALIS [Concomitant]
  20. DARVOCET-N 50 [Concomitant]
  21. DILACOR XR [Concomitant]
     Dosage: 180 MG, QD
  22. LOVASTATIN [Concomitant]
     Dosage: 40 MG, UNK
  23. MELPHALAN HYDROCHLORIDE [Concomitant]
  24. RADIATION THERAPY [Concomitant]
  25. CELEBREX [Concomitant]
  26. AZITHROMYCIN [Concomitant]
  27. FLOMAX [Concomitant]
  28. SERTRALINE HYDROCHLORIDE [Concomitant]
     Dosage: UNK
     Dates: start: 20060910
  29. IMMUNOGLOBULINS [Concomitant]
     Dosage: UNK
     Dates: start: 20030801
  30. CENTRUM [Concomitant]
  31. CALCIUM CARBONATE [Concomitant]

REACTIONS (54)
  - AMYLOIDOSIS [None]
  - ISCHAEMIA [None]
  - BENIGN PROSTATIC HYPERPLASIA [None]
  - ORAL TORUS [None]
  - CEREBRAL ISCHAEMIA [None]
  - BONE DISORDER [None]
  - HYPOPHAGIA [None]
  - CEREBROVASCULAR ACCIDENT [None]
  - OSTEOPOROSIS [None]
  - VISUAL FIELD DEFECT [None]
  - PROSTATE CANCER [None]
  - DEFORMITY [None]
  - GENERAL PHYSICAL HEALTH DETERIORATION [None]
  - ILL-DEFINED DISORDER [None]
  - ARTHRITIS [None]
  - SEBORRHOEIC KERATOSIS [None]
  - COUGH [None]
  - TRANSIENT ISCHAEMIC ATTACK [None]
  - SALIVARY GLAND ADENOMA [None]
  - ANXIETY [None]
  - DECREASED INTEREST [None]
  - MUCOSAL INFLAMMATION [None]
  - TOOTH ABSCESS [None]
  - HAEMORRHOIDS [None]
  - PROSTATIC SPECIFIC ANTIGEN INCREASED [None]
  - OSTEOPENIA [None]
  - BONE LESION [None]
  - CLAUSTROPHOBIA [None]
  - BODY HEIGHT DECREASED [None]
  - URINARY HESITATION [None]
  - BASAL CELL CARCINOMA [None]
  - OPTIC NEURITIS [None]
  - BENIGN BONE NEOPLASM [None]
  - OSTEONECROSIS OF JAW [None]
  - EMOTIONAL DISTRESS [None]
  - BURSITIS [None]
  - SARCOMA [None]
  - CEREBRAL ARTERIOSCLEROSIS [None]
  - RECTAL HAEMORRHAGE [None]
  - CELLULITIS [None]
  - HERPES ZOSTER [None]
  - GASTROOESOPHAGEAL REFLUX DISEASE [None]
  - ACTINIC KERATOSIS [None]
  - PAIN [None]
  - PAIN IN JAW [None]
  - EAR PAIN [None]
  - SLEEP APNOEA SYNDROME [None]
  - DEPRESSION [None]
  - PULPITIS DENTAL [None]
  - SPINAL OSTEOARTHRITIS [None]
  - VISION BLURRED [None]
  - NOCTURIA [None]
  - HEADACHE [None]
  - NASOPHARYNGITIS [None]
